FAERS Safety Report 12126867 (Version 4)
Quarter: 2016Q2

REPORT INFORMATION
  Report Type: Spontaneous
  Country: BR (occurrence: BR)
  Receive Date: 20160229
  Receipt Date: 20160531
  Transmission Date: 20160815
  Serious: Yes (Other)
  Sender: FDA-Public Use
  Company Number: BR-ABBVIE-16P-020-1570511-00

PATIENT
  Sex: Male

DRUGS (10)
  1. DEPAKENE [Suspect]
     Active Substance: VALPROIC ACID
     Route: 048
     Dates: start: 20151230
  2. PHENOBARBITAL. [Concomitant]
     Active Substance: PHENOBARBITAL
     Dosage: DAILY DOSE: 200 MG, AT NIGHT
     Route: 048
     Dates: start: 2015
  3. CONCOR 5 PLUS [Concomitant]
     Indication: PRODUCT USED FOR UNKNOWN INDICATION
     Dosage: DAILY DOSE: 5 MG; IN THE MORNING
     Route: 048
  4. COVERSYL PLUS [Concomitant]
     Active Substance: INDAPAMIDE\PERINDOPRIL
     Indication: PRODUCT USED FOR UNKNOWN INDICATION
     Dosage: DAILY DOSE: 1 TABLET; (PERINDOPRIL 4MG/INDAPAMIDE 1.25MG); ONCE IN THE MORNING
     Route: 048
  5. NATRILIX [Concomitant]
     Active Substance: INDAPAMIDE
     Indication: PRODUCT USED FOR UNKNOWN INDICATION
     Dosage: DAILY DOSE: 1 TABLET; IN THE MORNING
     Route: 048
  6. METFORMIN [Concomitant]
     Active Substance: METFORMIN HYDROCHLORIDE
     Indication: DIABETES MELLITUS
     Route: 048
  7. ATORVASTATIN [Concomitant]
     Active Substance: ATORVASTATIN
     Indication: BLOOD CHOLESTEROL INCREASED
     Dosage: DAILY DOSE: 20 MG; IN THE MORNING
     Route: 048
     Dates: start: 20141218
  8. PHENOBARBITAL. [Concomitant]
     Active Substance: PHENOBARBITAL
     Indication: SEIZURE
     Dosage: DAILY DOSE: 100 MG; BEFORE SLEEPING
     Route: 048
     Dates: start: 2015
  9. DEPAKENE [Suspect]
     Active Substance: VALPROIC ACID
     Indication: SEIZURE
     Route: 048
     Dates: start: 20141218
  10. DEPAKENE [Suspect]
     Active Substance: VALPROIC ACID
     Dosage: DAILY DOSE:1000MG; TWO AFTER LUNCH AND TWO AFTER DINNER
     Route: 048

REACTIONS (2)
  - Drug level below therapeutic [Unknown]
  - Suspected counterfeit product [Unknown]
